FAERS Safety Report 11371743 (Version 1)
Quarter: 2015Q3

REPORT INFORMATION
  Report Type: Other
  Country: DE (occurrence: DE)
  Receive Date: 20150812
  Receipt Date: 20150812
  Transmission Date: 20151125
  Serious: Yes (Hospitalization)
  Sender: FDA-Public Use
  Company Number: DE-MYLANLABS-2015M1026348

PATIENT

DRUGS (9)
  1. METOPROLOL [Interacting]
     Active Substance: METOPROLOL
     Dosage: 100 DF, UNK
  2. REMERGIL [Interacting]
     Active Substance: MIRTAZAPINE
     Dosage: 45 DF, UNK
  3. LORAZEPAM. [Concomitant]
     Active Substance: LORAZEPAM
     Dosage: 1 DF, UNK
     Dates: start: 20100518
  4. EVISTA [Concomitant]
     Active Substance: RALOXIFENE HYDROCHLORIDE
     Dosage: 60 DF, UNK
  5. CALCIUM CARBONATE. [Concomitant]
     Active Substance: CALCIUM CARBONATE
     Dosage: 1500 DF, UNK
  6. L-THYROXIN [Concomitant]
     Active Substance: LEVOTHYROXINE SODIUM
     Dosage: 0.075 DF, UNK
  7. HCT [Interacting]
     Active Substance: HYDROCHLOROTHIAZIDE
     Dosage: 25 DF, UNK
  8. CIPRALEX [Suspect]
     Active Substance: ESCITALOPRAM OXALATE
     Indication: DEPRESSION
     Dosage: 5 DF, UNK
     Dates: start: 20100618, end: 20100624
  9. QUETIAPIN RETARD [Interacting]
     Active Substance: QUETIAPINE
     Dosage: 400 DF, UNK
     Dates: start: 20100513

REACTIONS (1)
  - Dystonia [Recovered/Resolved]

NARRATIVE: CASE EVENT DATE: 20100622
